FAERS Safety Report 18324015 (Version 2)
Quarter: 2020Q4

REPORT INFORMATION
  Report Type: Spontaneous
  Country: US (occurrence: US)
  Receive Date: 20200928
  Receipt Date: 20201016
  Transmission Date: 20210113
  Serious: No
  Sender: FDA-Public Use
  Company Number: US-009507513-2009USA009082

PATIENT
  Age: 68 Year

DRUGS (2)
  1. PENICILLIN G [Concomitant]
     Active Substance: PENICILLIN G
     Indication: MEDICAL DEVICE SITE INFECTION
     Dosage: 18 MILLION INTERNATIONAL UNIT, CONTINUOUS INFUSION OVER 24 HOURS
     Route: 042
  2. ZERBAXA [Suspect]
     Active Substance: CEFTOLOZANE SULFATE\TAZOBACTAM SODIUM
     Indication: MEDICAL DEVICE SITE INFECTION
     Dosage: 4.5 G PER 500 ML, INFUSED OVER 24 HOURS

REACTIONS (1)
  - Off label use [Unknown]
